FAERS Safety Report 17842937 (Version 1)
Quarter: 2020Q2

REPORT INFORMATION
  Report Type: Spontaneous
  Country: US (occurrence: US)
  Receive Date: 20200530
  Receipt Date: 20200530
  Transmission Date: 20200714
  Serious: Yes (Life-Threatening, Hospitalization, Other)
  Sender: FDA-Public Use
  Company Number: US-AUROBINDO-AUR-APL-2020-026308

PATIENT
  Age: 51 Year
  Sex: Female

DRUGS (26)
  1. DIPHENHYDRAMINE. [Suspect]
     Active Substance: DIPHENHYDRAMINE
     Indication: BIPOLAR DISORDER
     Dosage: 50 MILLIGRAM (TWO ROUNDS ON DAY 2 AND DAY 3)
     Route: 030
  2. LORAZEPAM. [Suspect]
     Active Substance: LORAZEPAM
     Dosage: 1 MILLIGRAM (ORAL / INTRAMUSCULAR ON DAY 3)
     Route: 030
  3. OLANZAPINE. [Suspect]
     Active Substance: OLANZAPINE
     Dosage: 15 MILLIGRAM, TWO TIMES A DAY (ON DAY 2 DOSE WAS INCREASED)
     Route: 048
  4. CHLORPROMAZINE. [Interacting]
     Active Substance: CHLORPROMAZINE
     Dosage: 100 MILLIGRAM (100 MILLIGRAM (ON DAY 4 THE DOSE WAS AGAIN CHANGED TO 100 MG PO/IM)
     Route: 048
  5. LORAZEPAM. [Suspect]
     Active Substance: LORAZEPAM
     Dosage: 2 MILLIGRAM (TWO ROUNDS ON DAY 2 AND DAY 3)
     Route: 030
  6. CHLORPROMAZINE. [Interacting]
     Active Substance: CHLORPROMAZINE
     Indication: AGITATION
     Dosage: 100 MILLIGRAM (ON DAY 4 THE DOSE WAS AGAIN CHANGED TO 100 MG PO/IM)
     Route: 030
  7. CHLORPROMAZINE. [Interacting]
     Active Substance: CHLORPROMAZINE
     Dosage: 100 MILLIGRAM (ORAL / INTRAMUSCULAR ON DAY 3)
     Route: 048
  8. LORAZEPAM. [Suspect]
     Active Substance: LORAZEPAM
     Indication: PRODUCT USED FOR UNKNOWN INDICATION
     Dosage: 1 MILLIGRAM (ON DAY 4)
     Route: 030
  9. OLANZAPINE. [Suspect]
     Active Substance: OLANZAPINE
     Dosage: 10 MILLIGRAM, TWO TIMES A DAY (ON DAY 1)
  10. OSELTAMIVIR [Concomitant]
     Active Substance: OSELTAMIVIR
     Indication: INFLUENZA
     Dosage: UNK
     Route: 065
  11. DIVALPROEX [Interacting]
     Active Substance: DIVALPROEX SODIUM
     Dosage: 500 MILLIGRAM, ONCE A DAY (EVERY MORNING (QAM))
     Route: 048
  12. CHLORPROMAZINE. [Interacting]
     Active Substance: CHLORPROMAZINE
     Dosage: 100 MILLIGRAM (ORAL / INTRAMUSCULAR ON DAY 3)
     Route: 030
  13. HALOPERIDOL. [Suspect]
     Active Substance: HALOPERIDOL
     Indication: BIPOLAR DISORDER
     Dosage: 5 MILLIGRAM (TWO ROUNDS ON DAY 2 AND DAY 3)
     Route: 065
  14. ZYPREXA [Suspect]
     Active Substance: OLANZAPINE
     Indication: BIPOLAR DISORDER
     Dosage: 5 MILLIGRAM (AS NECESSARY AT DAY 4)
     Route: 065
  15. LORAZEPAM. [Suspect]
     Active Substance: LORAZEPAM
     Dosage: 1 MILLIGRAM (ORAL / INTRAMUSCULAR ON DAY 4)
     Route: 048
  16. DIVALPROEX [Interacting]
     Active Substance: DIVALPROEX SODIUM
     Indication: MOOD SWINGS
     Dosage: 1000 MILLIGRAM, ONCE A DAY (EVERY NIGHT AT BEDTIME (QHS))
     Route: 048
  17. LORAZEPAM. [Suspect]
     Active Substance: LORAZEPAM
     Dosage: 1 MILLIGRAM (ORAL / INTRAMUSCULAR ON DAY 3)
     Route: 048
  18. OLANZAPINE. [Suspect]
     Active Substance: OLANZAPINE
     Dosage: 5 MILLIGRAM, ONCE A DAY (ON DAY 2 TWO ROUNDS)
     Route: 048
  19. CHLORPROMAZINE. [Interacting]
     Active Substance: CHLORPROMAZINE
     Dosage: 200 MILLIGRAM, 3 TIMES A DAY (ON DAY 4 THE DOSE WAS CHANGED TO PO 200 MG Q8H)
     Route: 048
  20. LORAZEPAM. [Suspect]
     Active Substance: LORAZEPAM
     Dosage: 1 MILLIGRAM (ORAL / INTRAMUSCULAR ON DAY 4)
     Route: 030
  21. OLANZAPINE. [Suspect]
     Active Substance: OLANZAPINE
     Indication: BIPOLAR DISORDER
     Dosage: 5 MILLIGRAM, FOUR TIMES/DAY (ON DAY 1 AS AN WHEN NECESSARY (PRN))
  22. CHLORPROMAZINE. [Interacting]
     Active Substance: CHLORPROMAZINE
     Dosage: 100 MILLIGRAM (ON DAY 4)
     Route: 030
  23. CLONAZEPAM. [Suspect]
     Active Substance: CLONAZEPAM
     Dosage: 1 MILLIGRAM, TWO TIMES A DAY (ON DAY 2 DOSE INCREASED TO 1 MG PO)
     Route: 048
  24. LORAZEPAM. [Suspect]
     Active Substance: LORAZEPAM
     Dosage: 1 MILLIGRAM, 3 TIMES A DAY (ON DAY 4 THE DOSE WAS CHANGED TO Q8H)
     Route: 048
  25. CHLORPROMAZINE. [Interacting]
     Active Substance: CHLORPROMAZINE
     Dosage: 50 MILLIGRAM, ONCE A DAY (TWO ROUNDS ON DAY 2)
     Route: 030
  26. CLONAZEPAM. [Suspect]
     Active Substance: CLONAZEPAM
     Indication: BIPOLAR DISORDER
     Dosage: 0.5 MILLIGRAM, TWO TIMES A DAY (AT DAY 1)
     Route: 048

REACTIONS (10)
  - Respiratory distress [Recovered/Resolved]
  - Pneumonia [Unknown]
  - Pulmonary embolism [Recovered/Resolved]
  - Respiratory failure [Recovered/Resolved]
  - Hypercapnia [Recovered/Resolved]
  - Dysarthria [Unknown]
  - Somnolence [Unknown]
  - Deep vein thrombosis [Recovered/Resolved]
  - Chronic obstructive pulmonary disease [Recovered/Resolved]
  - Drug interaction [Unknown]
